FAERS Safety Report 6517798-9 (Version None)
Quarter: 2009Q4

REPORT INFORMATION
  Report Type: 
  Country: None (occurrence: None)
  Receive Date: 20091224
  Receipt Date: 20091218
  Transmission Date: 20100525
  Serious: No
  Sender: FDA-Public Use
  Company Number: NZ-PURDUE-USA_2007_0030137

PATIENT

DRUGS (1)
  1. OXYCONTIN [Suspect]
     Indication: BACK PAIN
     Route: 048
     Dates: start: 20070801, end: 20070801

REACTIONS (2)
  - RESTLESS LEGS SYNDROME [None]
  - TREMOR [None]
